FAERS Safety Report 4322168-8 (Version None)
Quarter: 2004Q1

REPORT INFORMATION
  Report Type: 
  Country: None (occurrence: None)
  Receive Date: 20040319
  Receipt Date: 20040303
  Transmission Date: 20041129
  Serious: Yes (Hospitalization)
  Sender: FDA-Public Use
  Company Number: A03200400679

PATIENT
  Age: 77 Year
  Sex: Male
  Weight: 91.173 kg

DRUGS (5)
  1. ELOXATIN [Suspect]
     Indication: COLORECTAL CANCER
     Dosage: 138 MG Q2W - INTRAVENOUS NOS
     Route: 042
     Dates: start: 20040226, end: 20040226
  2. FLUOROURACIL [Concomitant]
  3. LEUCOVORIN [Concomitant]
  4. DIPHENHYDRAMINE HCL [Concomitant]
  5. DEXAMETHASONE [Concomitant]

REACTIONS (10)
  - AGITATION [None]
  - BLOOD PRESSURE INCREASED [None]
  - CHEST DISCOMFORT [None]
  - CONFUSIONAL STATE [None]
  - DIALYSIS [None]
  - PYREXIA [None]
  - RASH GENERALISED [None]
  - RASH PRURITIC [None]
  - RENAL FAILURE ACUTE [None]
  - SKIN TOXICITY [None]
